APPROVED DRUG PRODUCT: TENORETIC 100
Active Ingredient: ATENOLOL; CHLORTHALIDONE
Strength: 100MG;25MG
Dosage Form/Route: TABLET;ORAL
Application: N018760 | Product #001 | TE Code: AB
Applicant: TWI PHARMACEUTICALS INC
Approved: Jun 8, 1984 | RLD: Yes | RS: Yes | Type: RX